FAERS Safety Report 22208576 (Version 2)
Quarter: 2023Q2

REPORT INFORMATION
  Report Type: Spontaneous
  Country: US (occurrence: US)
  Receive Date: 20230413
  Receipt Date: 20230428
  Transmission Date: 20230722
  Serious: Yes (Other)
  Sender: FDA-Public Use
  Company Number: US-TEVA-2023-US-2875527

PATIENT
  Age: 40 Year
  Sex: Female

DRUGS (13)
  1. DAUNORUBICIN [Suspect]
     Active Substance: DAUNORUBICIN
     Indication: Acute lymphocytic leukaemia
     Dosage: RECEIVED INDUCTION CHEMOTHERAPY (HYPERCVAD CYCLE 1A)
     Route: 065
  2. VINCRISTINE [Suspect]
     Active Substance: VINCRISTINE
     Indication: Acute lymphocytic leukaemia
     Dosage: RECEIVED INDUCTION CHEMOTHERAPY (HYPERCVAD CYCLE 1A)
     Route: 065
  3. DEXAMETHASONE [Suspect]
     Active Substance: DEXAMETHASONE
     Indication: Acute lymphocytic leukaemia
     Dosage: RECEIVED INDUCTION CHEMOTHERAPY (HYPERCVAD CYCLE 1A)
     Route: 065
  4. METHOTREXATE [Suspect]
     Active Substance: METHOTREXATE
     Indication: Acute lymphocytic leukaemia
     Dosage: RECEIVED HYPERCVAD CYCLE 1B
     Route: 065
  5. ETOPOSIDE [Suspect]
     Active Substance: ETOPOSIDE
     Indication: Leukaemia
     Dosage: RECEIVED MEC THERAPY
     Route: 065
  6. FLUDARABINE [Suspect]
     Active Substance: FLUDARABINE PHOSPHATE
     Indication: Leukaemia
     Dosage: RECEIVED FLAG-IDA REGIMEN
     Route: 065
  7. MITOXANTRONE [Suspect]
     Active Substance: MITOXANTRONE HYDROCHLORIDE
     Indication: Leukaemia
     Dosage: RECEIVED MEC THERAPY
     Route: 065
  8. IDARUBICIN [Suspect]
     Active Substance: IDARUBICIN
     Indication: Leukaemia
     Dosage: RECEIVED FLAG-IDA REGIMEN
     Route: 065
  9. CYTARABINE [Suspect]
     Active Substance: CYTARABINE
     Indication: Acute lymphocytic leukaemia
     Dosage: RECEIVED HYPERCVAD CYCLE 1B
     Route: 065
  10. CYTARABINE [Suspect]
     Active Substance: CYTARABINE
     Indication: Leukaemia
     Dosage: RECEIVED MEC THERAPY
     Route: 065
  11. CYTARABINE [Suspect]
     Active Substance: CYTARABINE
     Dosage: RECEIVED FLAG-IDA REGIMEN
     Route: 065
  12. BLINATUMOMAB [Suspect]
     Active Substance: BLINATUMOMAB
     Indication: Acute lymphocytic leukaemia
     Dosage: SALVAGE THERAPY
     Route: 065
  13. CYCLOPHOSPHAMIDE [Suspect]
     Active Substance: CYCLOPHOSPHAMIDE
     Indication: Acute lymphocytic leukaemia
     Dosage: RECEIVED INDUCTION CHEMOTHERAPY (HYPERCVAD CYCLE 1A)
     Route: 065

REACTIONS (5)
  - Cytokine release syndrome [Unknown]
  - Acute myeloid leukaemia [Unknown]
  - Acute biphenotypic leukaemia [Unknown]
  - Chloroma [Unknown]
  - Drug ineffective [Unknown]
